FAERS Safety Report 18375109 (Version 2)
Quarter: 2021Q3

REPORT INFORMATION
  Report Type: Spontaneous
  Country: US (occurrence: US)
  Receive Date: 20201013
  Receipt Date: 20210722
  Transmission Date: 20211014
  Serious: Yes (Hospitalization, Other)
  Sender: FDA-Public Use
  Company Number: US-CIPLA LTD.-2020US07134

PATIENT

DRUGS (1)
  1. WARFARIN [Suspect]
     Active Substance: WARFARIN
     Indication: PULMONARY EMBOLISM
     Dosage: UNK
     Route: 065

REACTIONS (4)
  - Anticoagulation drug level above therapeutic [Recovered/Resolved]
  - Haematoma [Unknown]
  - Duodenal obstruction [Unknown]
  - Haematuria [Unknown]
